FAERS Safety Report 14648175 (Version 1)
Quarter: 2018Q1

REPORT INFORMATION
  Report Type: Spontaneous
  Country: DK (occurrence: DK)
  Receive Date: 20180316
  Receipt Date: 20180316
  Transmission Date: 20180509
  Serious: Yes (Other)
  Sender: FDA-Public Use
  Company Number: DK-TEVA-2018-DK-867368

PATIENT
  Age: 68 Year
  Sex: Male

DRUGS (2)
  1. OLANZAPINE. [Concomitant]
     Active Substance: OLANZAPINE
     Indication: DELIRIUM
  2. STESOLID [Suspect]
     Active Substance: DIAZEPAM
     Indication: DELIRIUM
     Dosage: STRENGTH: 5 MG/ML
     Route: 042

REACTIONS (2)
  - Respiratory arrest [Recovered/Resolved]
  - Cardiac arrest [Recovered/Resolved]
